FAERS Safety Report 7628425-1 (Version None)
Quarter: 2011Q3

REPORT INFORMATION
  Report Type: 
  Country: None (occurrence: None)
  Receive Date: 20110722
  Receipt Date: 20110719
  Transmission Date: 20111222
  Serious: No
  Sender: FDA-Public Use
  Company Number: US-PFIZER INC-2011085464

PATIENT
  Sex: Female

DRUGS (7)
  1. PRISTIQ [Suspect]
     Indication: DEPRESSION
     Dosage: 50 MG, 1X/DAY
     Route: 048
     Dates: start: 20110223, end: 20110606
  2. ADDERALL 10 [Concomitant]
     Dosage: 10 MG, 2X/DAY
     Dates: start: 20110612, end: 20110617
  3. BUSPIRONE [Concomitant]
     Indication: ANXIETY
     Dosage: 10 MG, 2X/DAY
     Dates: start: 20110425, end: 20110617
  4. SENOKOT [Concomitant]
     Dosage: UNK
  5. PRILOSEC [Concomitant]
     Dosage: UNK
  6. PRISTIQ [Suspect]
     Indication: ANXIETY
  7. LORAZEPAM [Concomitant]
     Dosage: 1 MG, AT BEDTIME
     Dates: start: 20110109

REACTIONS (7)
  - RESTLESSNESS [None]
  - HEADACHE [None]
  - NAUSEA [None]
  - ANXIETY [None]
  - DIZZINESS [None]
  - MEDICATION RESIDUE [None]
  - MALAISE [None]
